FAERS Safety Report 7008702-8 (Version None)
Quarter: 2010Q3

REPORT INFORMATION
  Report Type: 
  Country: None (occurrence: None)
  Receive Date: 20100921
  Receipt Date: 20100902
  Transmission Date: 20110219
  Serious: Yes (Other)
  Sender: FDA-Public Use
  Company Number: UK-ACCORD-003407

PATIENT
  Age: 76 Year
  Sex: Male

DRUGS (1)
  1. MITOMYCIN [Suspect]
     Indication: BLADDER CANCER
     Dosage: 40.00-MG- / INTRAVESICAL
     Route: 043

REACTIONS (3)
  - BLADDER NECROSIS [None]
  - BLADDER PERFORATION [None]
  - OFF LABEL USE [None]
